FAERS Safety Report 14522321 (Version 1)
Quarter: 2018Q1

REPORT INFORMATION
  Report Type: Report from Study
  Country: US (occurrence: US)
  Receive Date: 20180212
  Receipt Date: 20180212
  Transmission Date: 20180509
  Serious: Yes (Other)
  Sender: FDA-Public Use
  Company Number: US-AMAG PHARMACEUTICALS, INC.-AMAG201701340

PATIENT

DRUGS (2)
  1. ALDOMET [Concomitant]
     Active Substance: METHYLDOPA
     Indication: HYPERTENSION
     Route: 065
  2. MAKENA [Suspect]
     Active Substance: HYDROXYPROGESTERONE CAPROATE
     Indication: PREMATURE DELIVERY
     Dosage: UNK
     Route: 065
     Dates: start: 20160920

REACTIONS (4)
  - Loss of consciousness [Unknown]
  - Treatment noncompliance [Unknown]
  - Product administered at inappropriate site [Unknown]
  - Injection site pain [Unknown]
